FAERS Safety Report 5199457-0 (Version None)
Quarter: 2006Q4

REPORT INFORMATION
  Report Type: 
  Country: None (occurrence: None)
  Receive Date: 20061229
  Receipt Date: 20061222
  Transmission Date: 20070319
  Serious: Yes (Hospitalization)
  Sender: FDA-Public Use
  Company Number: 2006SP008943

PATIENT
  Age: 56 Year
  Sex: Female
  Weight: 67 kg

DRUGS (1)
  1. TEMODAR [Suspect]
     Indication: GLIOBLASTOMA MULTIFORME
     Dosage: 75 MG, M2; PO
     Route: 048
     Dates: start: 20061106, end: 20061213

REACTIONS (3)
  - GALLBLADDER DISORDER [None]
  - PLATELET COUNT DECREASED [None]
  - RADIATION INJURY [None]
